FAERS Safety Report 16277963 (Version 1)
Quarter: 2019Q2

REPORT INFORMATION
  Report Type: Spontaneous
  Country: US (occurrence: US)
  Receive Date: 20190506
  Receipt Date: 20190506
  Transmission Date: 20190711
  Serious: Yes (Other)
  Sender: FDA-Public Use
  Company Number: US-BRACCO-2019US02149

PATIENT
  Sex: Male

DRUGS (1)
  1. MULTIHANCE [Suspect]
     Active Substance: GADOBENATE DIMEGLUMINE
     Indication: NUCLEAR MAGNETIC RESONANCE IMAGING
     Dosage: UNK, SINGLE

REACTIONS (21)
  - Pain [Unknown]
  - Bone pain [Unknown]
  - Asthenia [Unknown]
  - Tremor [Unknown]
  - Amnesia [Unknown]
  - Abdominal pain [Unknown]
  - Pruritus [Unknown]
  - Hyperhidrosis [Unknown]
  - Nephrogenic systemic fibrosis [Unknown]
  - Rash [Unknown]
  - Dysphagia [Unknown]
  - Anxiety [Unknown]
  - Confusional state [Unknown]
  - Nausea [Unknown]
  - Skin hypertrophy [Unknown]
  - Dizziness [Unknown]
  - Decreased appetite [Unknown]
  - Gadolinium deposition disease [Unknown]
  - Arthralgia [Unknown]
  - Disturbance in attention [Unknown]
  - Chest pain [Unknown]
